FAERS Safety Report 5722270-X (Version None)
Quarter: 2008Q2

REPORT INFORMATION
  Report Type: 
  Country: None (occurrence: None)
  Receive Date: 20080429
  Receipt Date: 20071004
  Transmission Date: 20081010
  Serious: No
  Sender: FDA-Public Use
  Company Number: US-ASTRAZENECA-2007UW23119

PATIENT
  Age: 78 Year
  Sex: Female
  Weight: 79.4 kg

DRUGS (10)
  1. NEXIUM [Suspect]
     Indication: HEART RATE IRREGULAR
     Route: 048
     Dates: start: 20070811
  2. NEXIUM IV [Suspect]
     Indication: HEART RATE IRREGULAR
     Route: 042
  3. PRAVACHOL [Concomitant]
  4. TENORMIN [Concomitant]
  5. CENTRUM SILVER VITAMINS [Concomitant]
  6. FLAXSEED OIL [Concomitant]
  7. OCUVITE VITAMINS FOR EYES [Concomitant]
  8. VASOTEC [Concomitant]
  9. GLUCOPHAGE [Concomitant]
  10. ISOSORBIDE DINITRATE [Concomitant]

REACTIONS (2)
  - HEART RATE IRREGULAR [None]
  - OSTEOARTHRITIS [None]
